FAERS Safety Report 9249747 (Version 3)
Quarter: 2013Q3

REPORT INFORMATION
  Report Type: Spontaneous
  Country: US (occurrence: US)
  Receive Date: 20130423
  Receipt Date: 20130904
  Transmission Date: 20140515
  Serious: Yes (Hospitalization, Other)
  Sender: FDA-Public Use
  Company Number: US-009507513-1109USA00518

PATIENT
  Sex: Female
  Weight: 56.25 kg

DRUGS (9)
  1. FOSAMAX [Suspect]
     Indication: OSTEOPENIA
     Dosage: 70 MG, QW
     Route: 048
     Dates: start: 20020621
  2. FOSAMAX [Suspect]
     Indication: OSTEOPOROSIS
  3. FOSAMAX [Suspect]
     Indication: OSTEOPENIA
     Dosage: 70 MG, UNK
     Route: 048
  4. FOSAMAX [Suspect]
     Indication: OSTEOPOROSIS
  5. PRINIVIL [Concomitant]
     Route: 048
  6. COREG [Concomitant]
  7. VYTORIN [Concomitant]
     Route: 048
  8. ALENDRONATE SODIUM [Suspect]
     Indication: OSTEOPENIA
     Dosage: 70 MG, UNK
     Route: 048
  9. ALENDRONATE SODIUM [Suspect]
     Indication: OSTEOPOROSIS

REACTIONS (47)
  - Femur fracture [Unknown]
  - Open reduction of fracture [Unknown]
  - Periprosthetic fracture [Unknown]
  - Femur fracture [Unknown]
  - Radius fracture [Unknown]
  - Closed fracture manipulation [Unknown]
  - Mastectomy [Unknown]
  - Haemorrhagic anaemia [Unknown]
  - Ventricular tachycardia [Unknown]
  - Arthropathy [Unknown]
  - Invasive ductal breast carcinoma [Unknown]
  - Thyroid disorder [Unknown]
  - Coronary artery disease [Unknown]
  - Catheterisation cardiac [Unknown]
  - Bursitis [Unknown]
  - Depression [Not Recovered/Not Resolved]
  - Mitral valve prolapse [Unknown]
  - Spondylolisthesis [Unknown]
  - Sciatica [Unknown]
  - Intervertebral disc protrusion [Unknown]
  - Spinal osteoarthritis [Unknown]
  - Lumbar radiculopathy [Unknown]
  - Facet joint syndrome [Unknown]
  - Pulmonary hypertension [Unknown]
  - Gastroenteritis viral [Unknown]
  - Ischaemic cardiomyopathy [Unknown]
  - Intermittent claudication [Unknown]
  - Compression fracture [Unknown]
  - Intervertebral disc degeneration [Unknown]
  - Fall [Unknown]
  - Road traffic accident [Unknown]
  - Cervical vertebral fracture [Unknown]
  - Contusion [Unknown]
  - Cardiac murmur [Unknown]
  - Fall [Unknown]
  - Bronchitis [Unknown]
  - Aortic arteriosclerosis [Unknown]
  - Left ventricular dysfunction [Unknown]
  - Thrombosis [Unknown]
  - Goitre [Unknown]
  - Aortic aneurysm [Unknown]
  - Aortic thrombosis [Unknown]
  - Chest pain [Unknown]
  - Left ventricular dysfunction [Unknown]
  - Scoliosis [Unknown]
  - Back pain [Unknown]
  - Gastrooesophageal reflux disease [Unknown]
